FAERS Safety Report 25631943 (Version 1)
Quarter: 2025Q3

REPORT INFORMATION
  Report Type: Spontaneous
  Country: US (occurrence: US)
  Receive Date: 20250801
  Receipt Date: 20250801
  Transmission Date: 20251020
  Serious: No
  Sender: ABBVIE
  Company Number: US-ABBVIE-6390802

PATIENT
  Age: 49 Year
  Sex: Female

DRUGS (7)
  1. ARMOUR THYROID [Suspect]
     Active Substance: THYROID, PORCINE
     Indication: Product used for unknown indication
     Route: 048
  2. BUDESONIDE [Concomitant]
     Active Substance: BUDESONIDE
     Indication: Product used for unknown indication
  3. FLUVOXAMINE [Concomitant]
     Active Substance: FLUVOXAMINE
     Indication: Product used for unknown indication
  4. GABAPENTIN [Concomitant]
     Active Substance: GABAPENTIN
     Indication: Product used for unknown indication
  5. PROGESTERONE [Concomitant]
     Active Substance: PROGESTERONE
     Indication: Product used for unknown indication
  6. SUMATRIPTAN [Concomitant]
     Active Substance: SUMATRIPTAN
     Indication: Product used for unknown indication
  7. VOQUEZNA [Concomitant]
     Active Substance: VONOPRAZAN FUMARATE
     Indication: Product used for unknown indication

REACTIONS (2)
  - Thrombocytopenia [Recovered/Resolved]
  - Unevaluable event [Unknown]

NARRATIVE: CASE EVENT DATE: 20250723
